FAERS Safety Report 9259858 (Version 1)
Quarter: 2013Q2

REPORT INFORMATION
  Report Type: Spontaneous
  Country: US (occurrence: US)
  Receive Date: 20130429
  Receipt Date: 20130429
  Transmission Date: 20140414
  Serious: No
  Sender: FDA-Public Use
  Company Number: US-009507513-1304USA014508

PATIENT
  Sex: Female

DRUGS (4)
  1. ASMANEX TWISTHALER [Suspect]
     Indication: ASTHMA
     Dosage: TWO DOSES, BID
     Route: 055
     Dates: start: 201008
  2. PROVENTIL [Concomitant]
     Dosage: UNK
  3. PROVENTIL [Concomitant]
     Dosage: UNK
  4. SEREVENT [Concomitant]

REACTIONS (4)
  - Dyspnoea [Recovering/Resolving]
  - Drug dose omission [Unknown]
  - Device malfunction [Unknown]
  - Product quality issue [Unknown]
